FAERS Safety Report 14367404 (Version 1)
Quarter: 2018Q1

REPORT INFORMATION
  Report Type: Spontaneous
  Country: US (occurrence: US)
  Receive Date: 20180109
  Receipt Date: 20180109
  Transmission Date: 20180509
  Serious: No
  Sender: FDA-Public Use
  Company Number: US-TARO-2017TAR00925

PATIENT
  Age: 75 Year
  Sex: Male
  Weight: 88.44 kg

DRUGS (2)
  1. CENTRUM MULTIVITAMIN [Concomitant]
     Dosage: UNK, 1X/DAY
  2. METRONIDAZOLE GEL USP, 1% [Suspect]
     Active Substance: METRONIDAZOLE
     Indication: ROSACEA
     Dosage: APPLIED TO FACE AS DIRECTED ONCE
     Route: 061
     Dates: start: 201710, end: 201710

REACTIONS (4)
  - Rash [Recovered/Resolved]
  - Erythema [Recovered/Resolved]
  - Skin irritation [Recovered/Resolved]
  - Acne [Recovered/Resolved]

NARRATIVE: CASE EVENT DATE: 201710
